FAERS Safety Report 7765049-X (Version None)
Quarter: 2011Q3

REPORT INFORMATION
  Report Type: 
  Country: None (occurrence: None)
  Receive Date: 20110921
  Receipt Date: 20110915
  Transmission Date: 20111222
  Serious: Yes (Other)
  Sender: FDA-Public Use
  Company Number: US-SANOFI-AVENTIS-2011SA060780

PATIENT
  Age: 67 Year
  Sex: Female

DRUGS (6)
  1. CLONIDINE [Concomitant]
     Indication: HYPERTENSION
  2. CLONIDINE [Concomitant]
     Dates: start: 20110101
  3. LOPRESSOR [Concomitant]
     Indication: HYPERTENSION
  4. MULTAQ [Suspect]
     Indication: ATRIAL FIBRILLATION
     Route: 048
     Dates: start: 20110824, end: 20110910
  5. LISINOPRIL AND HYDROCHLOROTHIAZIDE [Concomitant]
     Indication: HYPERTENSION
     Dosage: 20/12.5
  6. COUMADIN [Concomitant]

REACTIONS (5)
  - BLOOD PRESSURE INCREASED [None]
  - PALPITATIONS [None]
  - GASTROOESOPHAGEAL REFLUX DISEASE [None]
  - ABDOMINAL PAIN [None]
  - DYSPEPSIA [None]
